FAERS Safety Report 7024961-X (Version None)
Quarter: 2010Q4

REPORT INFORMATION
  Report Type: 
  Country: None (occurrence: None)
  Receive Date: 20101001
  Receipt Date: 20100930
  Transmission Date: 20110411
  Serious: Yes (Hospitalization)
  Sender: FDA-Public Use
  Company Number: BE-BRISTOL-MYERS SQUIBB COMPANY-14853824

PATIENT
  Age: 51 Year
  Sex: Male
  Weight: 64 kg

DRUGS (3)
  1. CETUXIMAB [Suspect]
     Indication: HEAD AND NECK CANCER
     Dosage: RECENT INF:21OCT09
     Route: 042
     Dates: start: 20090615
  2. CARBOPLATIN [Suspect]
     Indication: HEAD AND NECK CANCER
     Dosage: RECENT INF:21OCT09
     Route: 042
     Dates: start: 20090917
  3. TRAMADOL HCL [Concomitant]
     Route: 048
     Dates: start: 20091013, end: 20091022

REACTIONS (1)
  - DYSPHAGIA [None]
